FAERS Safety Report 9067108 (Version 1)
Quarter: 2013Q1

REPORT INFORMATION
  Report Type: Spontaneous
  Country: PT (occurrence: PT)
  Receive Date: 20130214
  Receipt Date: 20130214
  Transmission Date: 20140127
  Serious: Yes (Life-Threatening, Hospitalization)
  Sender: FDA-Public Use
  Company Number: PT-ELI_LILLY_AND_COMPANY-PT201302002213

PATIENT
  Age: 51 None
  Sex: Male
  Weight: 66 kg

DRUGS (4)
  1. ZYPADHERA [Suspect]
     Dosage: 405 MG, UNKNOWN
     Route: 030
     Dates: end: 20130131
  2. OMEPRAZOLE [Concomitant]
     Dosage: 20 MG, QD
     Route: 048
  3. NITROGLYCERINE [Concomitant]
     Dosage: 5 MG, QD
     Route: 062
  4. ACETYLSALICYLIC ACID [Concomitant]
     Dosage: 100 MG, QD

REACTIONS (1)
  - Cerebrovascular accident [Recovering/Resolving]
